FAERS Safety Report 10062125 (Version 1)
Quarter: 2014Q2

REPORT INFORMATION
  Report Type: Spontaneous
  Country: US (occurrence: US)
  Receive Date: 20140407
  Receipt Date: 20140407
  Transmission Date: 20141212
  Serious: Yes (Hospitalization)
  Sender: FDA-Public Use
  Company Number: US-009507513-1404USA002961

PATIENT
  Age: 83 Year
  Sex: 0

DRUGS (1)
  1. ZETIA [Suspect]
     Dosage: UNK
     Route: 048

REACTIONS (1)
  - Adverse event [Unknown]
